FAERS Safety Report 5875736-6 (Version None)
Quarter: 2008Q3

REPORT INFORMATION
  Report Type: 
  Country: None (occurrence: None)
  Receive Date: 20080905
  Receipt Date: 20080826
  Transmission Date: 20090109
  Serious: Yes (Hospitalization, Other)
  Sender: FDA-Public Use
  Company Number: SPI200800395

PATIENT
  Age: 68 Year
  Sex: Female
  Weight: 63.9 kg

DRUGS (12)
  1. AMITIZA [Suspect]
     Indication: CONSTIPATION
     Dosage: 8 MCG, SINGLE, ORAL
     Route: 048
     Dates: start: 20080619, end: 20080619
  2. GINKGO BILOBA (GINKGO BILOBA) [Concomitant]
  3. BEE POLLEN (BEE POLLEN) [Concomitant]
  4. GLUCOSAMINE (GLUCOSAMINE) [Concomitant]
  5. VITAMIN B COMPLEX /00003501/ (CALCIUM PANTOTHANATE, NICOTINAMIDE, PYRI [Concomitant]
  6. COD LIVER OIL FORTIFIED TAB [Concomitant]
  7. CALCIUM (CALCIUM) [Concomitant]
  8. FLAXSEED OIL (LINUM USITATISSIMUM SEED OIL) [Concomitant]
  9. ATENOLOL [Concomitant]
  10. PREMARIN /0073001/ (ESTROGENS CONJUGATED) [Concomitant]
  11. ZEGERID /00661201/ (OMEPRAZOLE) [Concomitant]
  12. ASPIRIN [Concomitant]

REACTIONS (8)
  - COLITIS ISCHAEMIC [None]
  - DIZZINESS [None]
  - HEART RATE INCREASED [None]
  - INTESTINAL ISCHAEMIA [None]
  - LYMPHADENOPATHY [None]
  - OVARIAN CANCER RECURRENT [None]
  - SMALL INTESTINAL OBSTRUCTION [None]
  - VOMITING [None]
